FAERS Safety Report 24534438 (Version 1)
Quarter: 2024Q4

REPORT INFORMATION
  Report Type: Report from Study
  Country: US (occurrence: US)
  Receive Date: 20241022
  Receipt Date: 20241022
  Transmission Date: 20250114
  Serious: Yes (Other)
  Sender: JAZZ
  Company Number: US-JAZZ PHARMACEUTICALS-2024-US-009118

PATIENT
  Sex: Female

DRUGS (6)
  1. SODIUM OXYBATE [Suspect]
     Active Substance: SODIUM OXYBATE
     Indication: Narcolepsy
     Dosage: UNK
  2. SODIUM OXYBATE [Suspect]
     Active Substance: SODIUM OXYBATE
     Indication: Cataplexy
  3. SODIUM OXYBATE [Suspect]
     Active Substance: SODIUM OXYBATE
     Indication: Somnolence
  4. KEPPRA [Concomitant]
     Active Substance: LEVETIRACETAM
     Dosage: UNK
     Dates: start: 20220420
  5. PRAZOSIN [Concomitant]
     Active Substance: PRAZOSIN\PRAZOSIN HYDROCHLORIDE
     Dosage: UNK
     Dates: start: 20220801
  6. LORAZEPAM [Concomitant]
     Active Substance: LORAZEPAM
     Dosage: UNK
     Dates: start: 20240506

REACTIONS (3)
  - Hyperthyroidism [Unknown]
  - Hypotension [Unknown]
  - Product administration interrupted [Unknown]
